FAERS Safety Report 8550580-X (Version None)
Quarter: 2012Q3

REPORT INFORMATION
  Report Type: 
  Country: None (occurrence: None)
  Receive Date: 20120730
  Receipt Date: 20120725
  Transmission Date: 20120928
  Serious: Yes (Other)
  Sender: FDA-Public Use
  Company Number: PHHY2012DE064116

PATIENT
  Age: 31 Year
  Sex: Female

DRUGS (1)
  1. CLINDAMYCIN [Suspect]
     Indication: ACUTE SINUSITIS
     Dosage: 3 DF, DAILY

REACTIONS (3)
  - ODYNOPHAGIA [None]
  - DYSPHAGIA [None]
  - OESOPHAGITIS [None]
